FAERS Safety Report 18561088 (Version 1)
Quarter: 2020Q4

REPORT INFORMATION
  Report Type: Report from Study
  Country: US (occurrence: US)
  Receive Date: 20201130
  Receipt Date: 20201130
  Transmission Date: 20210114
  Serious: No
  Sender: FDA-Public Use
  Company Number: NVSC2020US315610

PATIENT
  Age: 52 Year
  Sex: Female
  Weight: 102.06 kg

DRUGS (1)
  1. ENTRESTO [Suspect]
     Active Substance: SACUBITRIL\VALSARTAN
     Indication: CARDIAC FAILURE
     Dosage: 50 MG, BID(24.26 MG)
     Route: 048
     Dates: start: 20201108

REACTIONS (2)
  - Cough [Unknown]
  - Product administration error [Unknown]

NARRATIVE: CASE EVENT DATE: 20201119
